FAERS Safety Report 5146068-9 (Version None)
Quarter: 2006Q4

REPORT INFORMATION
  Report Type: 
  Country: None (occurrence: None)
  Receive Date: 20061108
  Receipt Date: 20061107
  Transmission Date: 20070319
  Serious: Yes (Other)
  Sender: FDA-Public Use
  Company Number: DE-GLAXOSMITHKLINE-D0051399A

PATIENT
  Age: 25 Year
  Sex: Female
  Weight: 54 kg

DRUGS (3)
  1. AUGMENTIN '125' [Suspect]
     Dosage: 10TAB SINGLE DOSE
     Route: 048
  2. CLAMOXYL [Suspect]
     Dosage: 10000MG SINGLE DOSE
     Route: 048
  3. ATARAX [Suspect]
     Dosage: 250MG SINGLE DOSE
     Route: 048

REACTIONS (5)
  - INTENTIONAL OVERDOSE [None]
  - MULTIPLE DRUG OVERDOSE INTENTIONAL [None]
  - NAUSEA [None]
  - SUICIDE ATTEMPT [None]
  - VOMITING [None]
